FAERS Safety Report 5316039-8 (Version None)
Quarter: 2007Q2

REPORT INFORMATION
  Report Type: 
  Country: None (occurrence: None)
  Receive Date: 20070503
  Receipt Date: 20070424
  Transmission Date: 20071010
  Serious: Yes (Hospitalization)
  Sender: FDA-Public Use
  Company Number: US-ELI_LILLY_AND_COMPANY-US200704005262

PATIENT
  Age: 91 Year
  Sex: Female

DRUGS (2)
  1. HUMULIN N [Suspect]
     Indication: DIABETES MELLITUS
     Dates: end: 20060801
  2. HUMULIN N [Suspect]
     Dates: start: 20070423

REACTIONS (2)
  - FALL [None]
  - HIP FRACTURE [None]
